FAERS Safety Report 8021874-1 (Version None)
Quarter: 2011Q4

REPORT INFORMATION
  Report Type: 
  Country: None (occurrence: None)
  Receive Date: 20111230
  Receipt Date: 20111215
  Transmission Date: 20120403
  Serious: Yes (Hospitalization, Other)
  Sender: FDA-Public Use
  Company Number: 2011MA017700

PATIENT
  Age: 58 Year
  Sex: Male

DRUGS (7)
  1. ZOLPIDEM EXTENDED RELEASE [Concomitant]
  2. CELECOXIB [Concomitant]
  3. CITALOPRAM HYDROBROMIDE [Concomitant]
  4. FENTANYL [Suspect]
     Indication: PAIN
     Dosage: 75 MCG;QH;TDER
     Route: 062
  5. OXYCODONE AND ACETAMINOPHEN [Suspect]
     Indication: PAIN
     Dosage: 5 /325 MG;BID;PO
     Route: 048
  6. MIRTAZAPINE [Concomitant]
  7. DOXAZOSIN MESYLATE [Concomitant]

REACTIONS (15)
  - DRUG WITHDRAWAL SYNDROME [None]
  - HYPERHIDROSIS [None]
  - YAWNING [None]
  - DRUG INTERACTION [None]
  - ANXIETY [None]
  - TREMOR [None]
  - INADEQUATE ANALGESIA [None]
  - AGITATION [None]
  - IATROGENIC INJURY [None]
  - INSOMNIA [None]
  - SEROTONIN SYNDROME [None]
  - TREATMENT NONCOMPLIANCE [None]
  - TACHYPNOEA [None]
  - CONFUSIONAL STATE [None]
  - HYPERTENSION [None]
